FAERS Safety Report 10720404 (Version 1)
Quarter: 2015Q1

REPORT INFORMATION
  Report Type: Spontaneous
  Country: US (occurrence: US)
  Receive Date: 20150119
  Receipt Date: 20150119
  Transmission Date: 20150721
  Serious: No
  Sender: FDA-Public Use
  Company Number: US-UNITED THERAPEUTICS-UNT-2014-007490

PATIENT
  Age: 71 Year
  Sex: Female
  Weight: 56.69 kg

DRUGS (3)
  1. LETAIRIS [Suspect]
     Active Substance: AMBRISENTAN
     Indication: PRODUCT USED FOR UNKNOWN INDICATION
     Dosage: 10 MG, QD
     Route: 065
     Dates: start: 20080811
  2. ADCIRCA [Concomitant]
     Active Substance: TADALAFIL
     Indication: PRODUCT USED FOR UNKNOWN INDICATION
  3. REMODULIN [Suspect]
     Active Substance: TREPROSTINIL
     Indication: PULMONARY ARTERIAL HYPERTENSION
     Dosage: 0.042 ?G/KG/MIN, CONTINUING
     Route: 058
     Dates: start: 20140829

REACTIONS (8)
  - Nausea [Unknown]
  - Infusion site induration [Unknown]
  - Infusion site pain [Recovering/Resolving]
  - Infusion site erythema [Not Recovered/Not Resolved]
  - Abdominal pain [Unknown]
  - Decreased appetite [Unknown]
  - Infusion site oedema [Unknown]
  - Fatigue [Unknown]

NARRATIVE: CASE EVENT DATE: 2014
